FAERS Safety Report 7214872-9 (Version None)
Quarter: 2011Q1

REPORT INFORMATION
  Report Type: 
  Country: None (occurrence: None)
  Receive Date: 20110107
  Receipt Date: 20100416
  Transmission Date: 20110831
  Serious: No
  Sender: FDA-Public Use
  Company Number: A0855484A

PATIENT
  Age: 75 Year
  Sex: Female

DRUGS (2)
  1. LOVAZA [Suspect]
     Dosage: 2CAP PER DAY
     Route: 048
     Dates: start: 20100415, end: 20100416
  2. METFORMIN [Concomitant]

REACTIONS (3)
  - CHOKING SENSATION [None]
  - RASH [None]
  - PRURITUS [None]
